FAERS Safety Report 16189452 (Version 2)
Quarter: 2020Q2

REPORT INFORMATION
  Report Type: Report from Study
  Country: JP (occurrence: JP)
  Receive Date: 20190412
  Receipt Date: 20200526
  Transmission Date: 20200713
  Serious: Yes (Hospitalization)
  Sender: FDA-Public Use
  Company Number: JP-PFIZER INC-2019159311

PATIENT
  Age: 44 Year
  Sex: Female
  Weight: 57.4 kg

DRUGS (5)
  1. RAPALIMUS [Suspect]
     Active Substance: SIROLIMUS
     Dosage: 2 MG, 1X/DAY
     Route: 048
     Dates: start: 20180511, end: 20180518
  2. FEXOFENADINE HYDROCHLORIDE. [Concomitant]
     Active Substance: FEXOFENADINE HYDROCHLORIDE
     Indication: LYMPHANGIOLEIOMYOMATOSIS
     Dosage: UNK UNK, DAILY
     Route: 048
  3. LANSOPRAZOLE. [Concomitant]
     Active Substance: LANSOPRAZOLE
     Indication: PROPHYLAXIS
     Dosage: UNK
     Route: 048
     Dates: start: 20180725
  4. RAPALIMUS [Suspect]
     Active Substance: SIROLIMUS
     Indication: LYMPHANGIOLEIOMYOMATOSIS
     Dosage: 2 MG, 1X/DAY
     Route: 048
     Dates: start: 20180329, end: 20180403
  5. RAPALIMUS [Suspect]
     Active Substance: SIROLIMUS
     Dosage: 2 MG, 1X/DAY
     Route: 048
     Dates: start: 20181005, end: 20190108

REACTIONS (7)
  - Pneumothorax [Recovered/Resolved]
  - Pneumothorax [Recovered/Resolved]
  - Diarrhoea [Recovered/Resolved]
  - Ovarian cyst [Recovered/Resolved]
  - Pneumothorax [Recovered/Resolved]
  - Pneumothorax [Recovered/Resolved]
  - Infectious pleural effusion [Recovered/Resolved]

NARRATIVE: CASE EVENT DATE: 20180402
